FAERS Safety Report 20212500 (Version 11)
Quarter: 2022Q3

REPORT INFORMATION
  Report Type: Spontaneous
  Country: IN (occurrence: IN)
  Receive Date: 20211221
  Receipt Date: 20220909
  Transmission Date: 20221026
  Serious: Yes (Other)
  Sender: FDA-Public Use
  Company Number: IN-PFIZER INC-202101752468

PATIENT
  Age: 67 Year
  Sex: Female
  Weight: 56.9 kg

DRUGS (7)
  1. PALBOCICLIB [Suspect]
     Active Substance: PALBOCICLIB
     Indication: Breast cancer metastatic
     Dosage: 125 MG, 1X/DAY
     Route: 048
     Dates: start: 20210420
  2. PALBOCICLIB [Suspect]
     Active Substance: PALBOCICLIB
     Dosage: 125 MG, 1X/DAY
     Route: 048
     Dates: start: 202105
  3. PALBOCICLIB [Suspect]
     Active Substance: PALBOCICLIB
     Dosage: 125 MG, 1X/DAY, 21DAYS
     Dates: start: 20220621
  4. LETROZOLE [Concomitant]
     Active Substance: LETROZOLE
     Indication: Breast cancer metastatic
     Dosage: 2.5 MG, 1X/DAY
     Dates: start: 202104
  5. CALCIUM CARBONATE\CHOLECALCIFEROL [Concomitant]
     Active Substance: CALCIUM CARBONATE\CHOLECALCIFEROL
     Dosage: 500 MG, 1X/DAY (28 DAYS)
  6. PYRIGESIC [Concomitant]
     Dosage: MAX 3 TABS/DAY
  7. MUCOBENZ [Concomitant]
     Dosage: UNK, 3X/DAY

REACTIONS (29)
  - Syncope [Unknown]
  - Cellulitis [Unknown]
  - Hypertension [Unknown]
  - White blood cell count decreased [Unknown]
  - Neutrophil count decreased [Unknown]
  - Back pain [Unknown]
  - Neck pain [Unknown]
  - Headache [Unknown]
  - Decreased appetite [Unknown]
  - Cough [Unknown]
  - Mucosal inflammation [Unknown]
  - Skin lesion [Unknown]
  - Pyrexia [Unknown]
  - Haemoglobin decreased [Unknown]
  - Upper respiratory tract infection [Unknown]
  - Platelet count decreased [Unknown]
  - Red blood cell count abnormal [Unknown]
  - Pain [Unknown]
  - Heart rate increased [Unknown]
  - Neutrophil count abnormal [Unknown]
  - Peripheral swelling [Recovered/Resolved]
  - Erythema [Recovered/Resolved]
  - Arthralgia [Unknown]
  - Pain in extremity [Unknown]
  - Retracted nipple [Unknown]
  - Platelet count increased [Unknown]
  - Oral discomfort [Unknown]
  - Stomatitis [Unknown]
  - Product dose omission issue [Unknown]

NARRATIVE: CASE EVENT DATE: 20210517
